FAERS Safety Report 14119623 (Version 8)
Quarter: 2018Q1

REPORT INFORMATION
  Report Type: Report from Study
  Country: None (occurrence: ES)
  Receive Date: 20171024
  Receipt Date: 20180201
  Transmission Date: 20180508
  Serious: Yes (Hospitalization)
  Sender: FDA-Public Use
  Company Number: ES-ABBVIE-17K-144-2135029-00

PATIENT
  Age: 53 Year
  Sex: Female
  Weight: 58 kg

DRUGS (3)
  1. DUODOPA [Suspect]
     Active Substance: CARBIDOPA\LEVODOPA
     Route: 050
     Dates: start: 20171128, end: 201801
  2. DUODOPA [Suspect]
     Active Substance: CARBIDOPA\LEVODOPA
     Dosage: CD: 2.5ML/H
     Route: 050
     Dates: start: 2017, end: 201711
  3. DUODOPA [Suspect]
     Active Substance: CARBIDOPA\LEVODOPA
     Indication: PARKINSON^S DISEASE
     Dosage: CONTINUOUS DOSAGE: 2.3 ML/H
     Route: 050
     Dates: start: 20170921, end: 20171118

REACTIONS (18)
  - Apathy [Not Recovered/Not Resolved]
  - Balance disorder [Recovering/Resolving]
  - Depression [Not Recovered/Not Resolved]
  - Mental disorder [Unknown]
  - Ileus paralytic [Recovered/Resolved]
  - Protein total decreased [Unknown]
  - Dyskinesia [Recovered/Resolved]
  - Depressed mood [Unknown]
  - Gastroenteritis [Recovered/Resolved]
  - Vomiting [Not Recovered/Not Resolved]
  - Urinary tract infection [Recovered/Resolved]
  - Device issue [Recovered/Resolved]
  - Dystonia [Recovering/Resolving]
  - On and off phenomenon [Recovering/Resolving]
  - Abdominal discomfort [Not Recovered/Not Resolved]
  - Anxiety [Recovering/Resolving]
  - Complication of device insertion [Unknown]
  - Nausea [Not Recovered/Not Resolved]

NARRATIVE: CASE EVENT DATE: 2017
